FAERS Safety Report 15987641 (Version 1)
Quarter: 2019Q1

REPORT INFORMATION
  Report Type: Spontaneous
  Country: NZ (occurrence: NZ)
  Receive Date: 20190220
  Receipt Date: 20190220
  Transmission Date: 20190418
  Serious: Yes (Other)
  Sender: FDA-Public Use
  Company Number: NZ-PFIZER INC-2019069619

PATIENT
  Age: 69 Year
  Sex: Male

DRUGS (1)
  1. PREGABALIN. [Suspect]
     Active Substance: PREGABALIN
     Indication: SCIATICA
     Dosage: 175 MG, DAILY (150MG AT NIGHT AND 25MG IN THE MORNING)

REACTIONS (3)
  - Facial paralysis [Recovered/Resolved]
  - Eyelid ptosis [Recovered/Resolved]
  - Vision blurred [Recovered/Resolved]
